FAERS Safety Report 9447735 (Version 1)
Quarter: 2013Q3

REPORT INFORMATION
  Report Type: Spontaneous
  Country: FR (occurrence: None)
  Receive Date: 20130805
  Receipt Date: 20130805
  Transmission Date: 20140515
  Serious: Yes (Hospitalization)
  Sender: FDA-Public Use
  Company Number: SYM-2013-07442

PATIENT
  Age: 84 Year
  Sex: Female

DRUGS (10)
  1. FLAGYL [Suspect]
     Indication: CLOSTRIDIAL INFECTION
     Route: 048
     Dates: start: 20130604, end: 20130611
  2. CALCIPARINE [Suspect]
     Indication: PRODUCT USED FOR UNKNOWN INDICATION
     Route: 058
     Dates: start: 20130605, end: 20130609
  3. COUMADINE [Suspect]
     Indication: ARRHYTHMIA SUPRAVENTRICULAR
     Route: 048
     Dates: start: 20130613, end: 20130613
  4. CONTRAMAL [Suspect]
     Indication: OSTEOARTHRITIS
     Route: 048
     Dates: end: 20130616
  5. TIORFAN [Suspect]
     Indication: DIARRHOEA
     Route: 048
     Dates: start: 20130614
  6. AMLOR (AMLODIPINE BESILATE) (AMLODIPINE BESILATE) [Concomitant]
  7. LEVOTHYROX (LEBOTHYROXINE SODIUM) (LEVOTHYROXINE SODIUM) [Concomitant]
  8. INEXIUM (ESOMEPRAZOLE MAGNESIUM) (ESOMEPRAZOLE MAGNESIUM) [Concomitant]
  9. CORDARONE (AMIODARONE HYDROCHLORIDE) (AMIODARONE HYDROCHLORIDE) [Concomitant]
  10. SPECIAFOLDINE (FOLICE ACID) (FOLIC ACID) [Concomitant]

REACTIONS (1)
  - Coagulopathy [None]
